FAERS Safety Report 15452370 (Version 1)
Quarter: 2018Q4

REPORT INFORMATION
  Report Type: Spontaneous
  Country: US (occurrence: US)
  Receive Date: 20181001
  Receipt Date: 20181001
  Transmission Date: 20190204
  Serious: No
  Sender: FDA-Public Use
  Company Number: US-ALKERMES INC.-ALK-2018-005148

PATIENT
  Age: 38 Year
  Sex: Female

DRUGS (7)
  1. ZYPREXA RELPHEW [Suspect]
     Active Substance: OLANZAPINE
     Indication: SCHIZOPHRENIA
  2. MELLARIL [Suspect]
     Active Substance: THIORIDAZINE HYDROCHLORIDE
     Indication: SCHIZOPHRENIA
  3. ABILIFY MAINTENA [Suspect]
     Active Substance: ARIPIPRAZOLE
     Indication: SCHIZOPHRENIA
  4. ARISTADA [Suspect]
     Active Substance: ARIPIPRAZOLE LAUROXIL
     Indication: SCHIZOPHRENIA
     Dosage: UNK
     Route: 030
  5. ABILIFY [Suspect]
     Active Substance: ARIPIPRAZOLE
     Indication: SCHIZOPHRENIA
  6. ABILIFY DISCMELT [Suspect]
     Active Substance: ARIPIPRAZOLE
     Indication: SCHIZOPHRENIA
  7. ZYPREXA INTRAMUSCULAR [Suspect]
     Active Substance: OLANZAPINE
     Indication: SCHIZOPHRENIA
     Route: 030

REACTIONS (7)
  - Personal relationship issue [Unknown]
  - Agitation [Unknown]
  - Emotional poverty [Unknown]
  - Social avoidant behaviour [Unknown]
  - Cognitive disorder [Unknown]
  - Drug ineffective [Unknown]
  - Hostility [Unknown]
